FAERS Safety Report 10166396 (Version 1)
Quarter: 2014Q2

REPORT INFORMATION
  Report Type: Spontaneous
  Country: CA (occurrence: CA)
  Receive Date: 20140512
  Receipt Date: 20140512
  Transmission Date: 20141212
  Serious: Yes (Other)
  Sender: FDA-Public Use
  Company Number: CA-AMGEN-CANSP2014033184

PATIENT
  Age: 81 Year
  Sex: Female

DRUGS (3)
  1. PROLIA [Suspect]
     Indication: OSTEOPOROSIS
     Dosage: 60 UNK, UNK
     Route: 065
     Dates: start: 20120416
  2. SPIRIVA [Concomitant]
     Indication: EMPHYSEMA
     Dosage: UNK
  3. ADVAIR [Concomitant]
     Indication: EMPHYSEMA
     Dosage: UNK

REACTIONS (2)
  - Cataract [Not Recovered/Not Resolved]
  - Photophobia [Recovered/Resolved]
